FAERS Safety Report 9531440 (Version 3)
Quarter: 2013Q4

REPORT INFORMATION
  Report Type: Spontaneous
  Country: US (occurrence: US)
  Receive Date: 20130918
  Receipt Date: 20131007
  Transmission Date: 20140711
  Serious: No
  Sender: FDA-Public Use
  Company Number: US-009507513-1309USA007397

PATIENT
  Age: 83 Year
  Sex: Female

DRUGS (2)
  1. DR. SCHOLLS CORN/CALLUS REMOVER [Suspect]
     Indication: HYPERKERATOSIS
     Dosage: UNK, QD
     Route: 061
  2. DR. SCHOLLS CORN/CALLUS REMOVER [Suspect]
     Dosage: UNK, QD
     Route: 061

REACTIONS (1)
  - Drug ineffective [Unknown]
